FAERS Safety Report 20913952 (Version 11)
Quarter: 2025Q2

REPORT INFORMATION
  Report Type: Spontaneous
  Country: ES (occurrence: ES)
  Receive Date: 20220604
  Receipt Date: 20250405
  Transmission Date: 20250717
  Serious: Yes (Hospitalization, Other)
  Sender: CELLTRION
  Company Number: ES-CELLTRION INC.-2022ES008269

PATIENT

DRUGS (149)
  1. RITUXIMAB [Suspect]
     Active Substance: RITUXIMAB
     Indication: B-cell lymphoma
     Dosage: 375 MG/M2, QW; CONCENTRATE FOR SOLUTION FOR INFUSION
     Route: 042
     Dates: start: 20211231
  2. RITUXIMAB [Suspect]
     Active Substance: RITUXIMAB
     Indication: Follicular lymphoma
     Route: 042
  3. RITUXIMAB [Suspect]
     Active Substance: RITUXIMAB
     Dosage: GRADE 2; 375 MG, QW/ 53.5714 MILLIGRAM/SQ. METER
     Route: 042
     Dates: start: 20211230
  4. RITUXIMAB [Suspect]
     Active Substance: RITUXIMAB
     Route: 048
     Dates: start: 20220107
  5. RITUXIMAB [Suspect]
     Active Substance: RITUXIMAB
  6. RITUXIMAB [Suspect]
     Active Substance: RITUXIMAB
     Dosage: 375 MG, QW / 1/WEEK
     Route: 042
     Dates: start: 20211231
  7. RITUXIMAB [Suspect]
     Active Substance: RITUXIMAB
     Dosage: 375 MG, QW
     Route: 042
     Dates: start: 20211230
  8. RITUXIMAB [Suspect]
     Active Substance: RITUXIMAB
     Dosage: 375 MG/M2, QW
     Route: 048
     Dates: start: 20211230
  9. RITUXIMAB [Suspect]
     Active Substance: RITUXIMAB
     Dosage: 375 MG/M2, QW
     Route: 048
     Dates: start: 20211231
  10. RITUXIMAB [Suspect]
     Active Substance: RITUXIMAB
     Route: 042
     Dates: start: 20220107
  11. RITUXIMAB [Suspect]
     Active Substance: RITUXIMAB
     Dosage: 375 MG/M2, 1/WEEK
     Route: 042
     Dates: start: 20211230
  12. RITUXIMAB [Suspect]
     Active Substance: RITUXIMAB
     Route: 065
  13. RITUXIMAB [Suspect]
     Active Substance: RITUXIMAB
     Dosage: 375 MG/M2, EVERY 1 WEEK
     Route: 041
     Dates: start: 20211231
  14. ASPIRIN [Suspect]
     Active Substance: ASPIRIN
     Indication: Product used for unknown indication
     Route: 065
  15. ASPIRIN [Suspect]
     Active Substance: ASPIRIN
     Route: 065
     Dates: start: 20211231
  16. ASPIRIN [Suspect]
     Active Substance: ASPIRIN
  17. ASPIRIN [Suspect]
     Active Substance: ASPIRIN
     Route: 065
  18. ASPIRIN [Suspect]
     Active Substance: ASPIRIN
     Route: 065
  19. ASPIRIN [Suspect]
     Active Substance: ASPIRIN
     Route: 048
  20. ASPIRIN [Suspect]
     Active Substance: ASPIRIN
     Route: 048
     Dates: start: 20211231
  21. ACYCLOVIR [Suspect]
     Active Substance: ACYCLOVIR
     Indication: Prophylaxis
     Route: 048
     Dates: start: 20211230
  22. ACYCLOVIR [Suspect]
     Active Substance: ACYCLOVIR
     Route: 048
     Dates: start: 20211230
  23. ACYCLOVIR [Suspect]
     Active Substance: ACYCLOVIR
     Route: 048
     Dates: start: 20211230
  24. ACYCLOVIR [Suspect]
     Active Substance: ACYCLOVIR
     Route: 048
     Dates: start: 20211230
  25. ACYCLOVIR [Suspect]
     Active Substance: ACYCLOVIR
     Route: 048
     Dates: start: 20211231
  26. ACYCLOVIR [Suspect]
     Active Substance: ACYCLOVIR
     Route: 065
     Dates: start: 20211231
  27. ACYCLOVIR [Suspect]
     Active Substance: ACYCLOVIR
     Dates: start: 20211231
  28. ACYCLOVIR [Suspect]
     Active Substance: ACYCLOVIR
     Route: 065
     Dates: start: 20211231
  29. ALLOPURINOL [Suspect]
     Active Substance: ALLOPURINOL
     Indication: Prophylaxis
     Route: 065
     Dates: start: 20211231, end: 20220217
  30. ALLOPURINOL [Suspect]
     Active Substance: ALLOPURINOL
     Indication: Follicular lymphoma
     Route: 048
     Dates: start: 20211230, end: 20220217
  31. ALLOPURINOL [Suspect]
     Active Substance: ALLOPURINOL
     Route: 065
     Dates: start: 20211231
  32. ALLOPURINOL [Suspect]
     Active Substance: ALLOPURINOL
     Route: 048
     Dates: start: 20211230, end: 20220217
  33. ALLOPURINOL [Suspect]
     Active Substance: ALLOPURINOL
     Route: 065
  34. ALLOPURINOL [Suspect]
     Active Substance: ALLOPURINOL
     Route: 065
     Dates: start: 20211231, end: 20220217
  35. ALLOPURINOL [Suspect]
     Active Substance: ALLOPURINOL
     Route: 065
  36. ALLOPURINOL [Suspect]
     Active Substance: ALLOPURINOL
     Route: 065
     Dates: start: 20211230, end: 20220217
  37. ALLOPURINOL [Suspect]
     Active Substance: ALLOPURINOL
     Route: 065
  38. ALLOPURINOL [Suspect]
     Active Substance: ALLOPURINOL
     Route: 048
     Dates: start: 20211231, end: 20220217
  39. ALLOPURINOL [Suspect]
     Active Substance: ALLOPURINOL
  40. AMOXICILLIN [Suspect]
     Active Substance: AMOXICILLIN
     Indication: Product used for unknown indication
     Route: 065
  41. AMOXICILLIN\CLAVULANIC ACID [Suspect]
     Active Substance: AMOXICILLIN\CLAVULANIC ACID
     Indication: Product used for unknown indication
  42. AMOXICILLIN\CLAVULANIC ACID [Suspect]
     Active Substance: AMOXICILLIN\CLAVULANIC ACID
     Route: 065
     Dates: start: 20220122
  43. AMOXICILLIN\CLAVULANIC ACID [Suspect]
     Active Substance: AMOXICILLIN\CLAVULANIC ACID
     Route: 065
     Dates: start: 20220122
  44. EPCORITAMAB [Suspect]
     Active Substance: EPCORITAMAB
     Indication: B-cell lymphoma
     Route: 058
     Dates: start: 20211231, end: 20211231
  45. EPCORITAMAB [Suspect]
     Active Substance: EPCORITAMAB
     Indication: Follicular lymphoma
     Route: 058
     Dates: start: 20220107, end: 20220107
  46. EPCORITAMAB [Suspect]
     Active Substance: EPCORITAMAB
     Route: 058
     Dates: start: 20220114
  47. EPCORITAMAB [Suspect]
     Active Substance: EPCORITAMAB
     Route: 058
     Dates: start: 20211231, end: 20211231
  48. EPCORITAMAB [Suspect]
     Active Substance: EPCORITAMAB
     Route: 058
     Dates: start: 20220107, end: 20220107
  49. EPCORITAMAB [Suspect]
     Active Substance: EPCORITAMAB
     Dosage: 48 MG, WEEKLY
     Route: 058
     Dates: start: 20220114
  50. EPCORITAMAB [Suspect]
     Active Substance: EPCORITAMAB
     Route: 058
     Dates: start: 20220107, end: 20220107
  51. EPCORITAMAB [Suspect]
     Active Substance: EPCORITAMAB
     Route: 058
     Dates: start: 20220114
  52. EPCORITAMAB [Suspect]
     Active Substance: EPCORITAMAB
     Route: 058
     Dates: start: 20211230, end: 20211230
  53. EPCORITAMAB [Suspect]
     Active Substance: EPCORITAMAB
     Route: 058
     Dates: start: 20211231, end: 20211231
  54. EPCORITAMAB [Suspect]
     Active Substance: EPCORITAMAB
     Indication: Follicular lymphoma
     Route: 058
     Dates: start: 20211230, end: 20211230
  55. EPCORITAMAB [Suspect]
     Active Substance: EPCORITAMAB
     Route: 058
     Dates: start: 20211207, end: 20211207
  56. LENALIDOMIDE [Suspect]
     Active Substance: LENALIDOMIDE
     Indication: B-cell lymphoma
     Route: 065
  57. LENALIDOMIDE [Suspect]
     Active Substance: LENALIDOMIDE
     Indication: Follicular lymphoma
     Route: 065
  58. LENALIDOMIDE [Suspect]
     Active Substance: LENALIDOMIDE
     Route: 048
  59. LENALIDOMIDE [Suspect]
     Active Substance: LENALIDOMIDE
  60. PREDNISONE [Suspect]
     Active Substance: PREDNISONE
     Indication: Product used for unknown indication
     Route: 048
     Dates: start: 20220108, end: 20220110
  61. PREDNISONE [Suspect]
     Active Substance: PREDNISONE
     Route: 048
     Dates: start: 20220101, end: 20220117
  62. PREDNISONE [Suspect]
     Active Substance: PREDNISONE
     Route: 048
     Dates: start: 20220115, end: 20220117
  63. PREDNISONE [Suspect]
     Active Substance: PREDNISONE
     Route: 048
  64. PREDNISONE [Suspect]
     Active Substance: PREDNISONE
     Route: 065
  65. PREDNISONE [Suspect]
     Active Substance: PREDNISONE
     Route: 065
  66. PREDNISONE [Suspect]
     Active Substance: PREDNISONE
     Dates: start: 20220101, end: 20220103
  67. PREDNISONE [Suspect]
     Active Substance: PREDNISONE
     Route: 065
     Dates: start: 20220108, end: 20220110
  68. PREDNISONE [Suspect]
     Active Substance: PREDNISONE
     Route: 048
     Dates: start: 20220101, end: 20220103
  69. PREDNISONE [Suspect]
     Active Substance: PREDNISONE
     Dates: start: 20210117
  70. PREDNISONE [Suspect]
     Active Substance: PREDNISONE
     Route: 048
     Dates: start: 20220117
  71. OMEPRAZOLE [Suspect]
     Active Substance: OMEPRAZOLE
     Indication: Prophylaxis
     Route: 048
     Dates: start: 20211230
  72. OMEPRAZOLE [Suspect]
     Active Substance: OMEPRAZOLE
     Route: 065
     Dates: start: 20211231
  73. OMEPRAZOLE [Suspect]
     Active Substance: OMEPRAZOLE
     Route: 065
     Dates: start: 20211230
  74. OMEPRAZOLE [Suspect]
     Active Substance: OMEPRAZOLE
     Route: 048
     Dates: start: 20211231
  75. OMEPRAZOLE [Suspect]
     Active Substance: OMEPRAZOLE
     Route: 042
  76. OMEPRAZOLE [Suspect]
     Active Substance: OMEPRAZOLE
     Route: 042
  77. OMEPRAZOLE [Suspect]
     Active Substance: OMEPRAZOLE
     Route: 048
  78. OMEPRAZOLE [Suspect]
     Active Substance: OMEPRAZOLE
     Route: 048
     Dates: start: 20211230
  79. OMEPRAZOLE [Suspect]
     Active Substance: OMEPRAZOLE
     Route: 048
     Dates: start: 20211231
  80. OMEPRAZOLE [Suspect]
     Active Substance: OMEPRAZOLE
     Indication: Product used for unknown indication
  81. OMEPRAZOLE [Suspect]
     Active Substance: OMEPRAZOLE
     Dates: start: 20211231
  82. ACETAMINOPHEN [Suspect]
     Active Substance: ACETAMINOPHEN
     Indication: Pain
     Route: 048
     Dates: start: 20211231
  83. ACETAMINOPHEN [Suspect]
     Active Substance: ACETAMINOPHEN
     Route: 048
     Dates: start: 20210107
  84. ACETAMINOPHEN [Suspect]
     Active Substance: ACETAMINOPHEN
     Route: 048
     Dates: start: 20210114
  85. ACETAMINOPHEN [Suspect]
     Active Substance: ACETAMINOPHEN
     Route: 048
     Dates: start: 20211231, end: 20220114
  86. ACETAMINOPHEN [Suspect]
     Active Substance: ACETAMINOPHEN
  87. ACETAMINOPHEN [Suspect]
     Active Substance: ACETAMINOPHEN
     Route: 048
     Dates: start: 20211231, end: 20220114
  88. SODIUM CHLORIDE [Suspect]
     Active Substance: SODIUM CHLORIDE
     Indication: Product used for unknown indication
  89. SULFAMETHOXAZOLE\TRIMETHOPRIM [Suspect]
     Active Substance: SULFAMETHOXAZOLE\TRIMETHOPRIM
     Indication: Prophylaxis
     Route: 048
     Dates: start: 20211230, end: 20220217
  90. SULFAMETHOXAZOLE\TRIMETHOPRIM [Suspect]
     Active Substance: SULFAMETHOXAZOLE\TRIMETHOPRIM
     Route: 048
     Dates: start: 20211231
  91. SULFAMETHOXAZOLE\TRIMETHOPRIM [Suspect]
     Active Substance: SULFAMETHOXAZOLE\TRIMETHOPRIM
     Route: 065
  92. SULFAMETHOXAZOLE\TRIMETHOPRIM [Suspect]
     Active Substance: SULFAMETHOXAZOLE\TRIMETHOPRIM
     Route: 065
     Dates: start: 20211231
  93. SULFAMETHOXAZOLE\TRIMETHOPRIM [Suspect]
     Active Substance: SULFAMETHOXAZOLE\TRIMETHOPRIM
     Route: 065
     Dates: start: 20211230, end: 20220217
  94. SULFAMETHOXAZOLE\TRIMETHOPRIM [Suspect]
     Active Substance: SULFAMETHOXAZOLE\TRIMETHOPRIM
     Indication: Product used for unknown indication
     Route: 048
     Dates: start: 20211231, end: 20220217
  95. SODIUM FLUORIDE [Suspect]
     Active Substance: SODIUM FLUORIDE
     Indication: Product used for unknown indication
     Route: 065
  96. SODIUM FLUORIDE [Suspect]
     Active Substance: SODIUM FLUORIDE
     Route: 042
  97. SODIUM FLUORIDE [Suspect]
     Active Substance: SODIUM FLUORIDE
     Indication: Product used for unknown indication
     Route: 042
  98. SODIUM FLUORIDE [Suspect]
     Active Substance: SODIUM FLUORIDE
  99. SODIUM FLUORIDE [Suspect]
     Active Substance: SODIUM FLUORIDE
     Route: 065
  100. ASPIRIN [Suspect]
     Active Substance: ASPIRIN
     Indication: Product used for unknown indication
     Route: 048
  101. ASPIRIN [Suspect]
     Active Substance: ASPIRIN
  102. ASPIRIN [Suspect]
     Active Substance: ASPIRIN
     Route: 048
     Dates: start: 20211231
  103. EPCORITAMAB [Suspect]
     Active Substance: EPCORITAMAB
     Indication: Follicular lymphoma
     Route: 058
     Dates: start: 20220107, end: 20220107
  104. EPCORITAMAB [Suspect]
     Active Substance: EPCORITAMAB
     Indication: B-cell lymphoma
     Route: 058
     Dates: start: 20211230, end: 20211230
  105. EPCORITAMAB [Suspect]
     Active Substance: EPCORITAMAB
     Route: 058
     Dates: start: 20220114
  106. EPCORITAMAB [Suspect]
     Active Substance: EPCORITAMAB
     Route: 058
     Dates: start: 20211231, end: 20211231
  107. EPCORITAMAB [Suspect]
     Active Substance: EPCORITAMAB
     Route: 065
     Dates: start: 20211230, end: 20211230
  108. EPCORITAMAB [Suspect]
     Active Substance: EPCORITAMAB
     Route: 065
     Dates: start: 20211231, end: 20211231
  109. EPCORITAMAB [Suspect]
     Active Substance: EPCORITAMAB
     Route: 065
     Dates: start: 20220114
  110. EPCORITAMAB [Suspect]
     Active Substance: EPCORITAMAB
     Route: 065
     Dates: start: 20220107, end: 20220107
  111. ACETAMINOPHEN [Suspect]
     Active Substance: ACETAMINOPHEN
     Indication: Product used for unknown indication
     Route: 065
     Dates: start: 20210114
  112. ACETAMINOPHEN [Suspect]
     Active Substance: ACETAMINOPHEN
     Route: 065
     Dates: start: 20211231, end: 20220114
  113. ACETAMINOPHEN [Suspect]
     Active Substance: ACETAMINOPHEN
     Route: 065
     Dates: start: 20210107
  114. ACETAMINOPHEN [Suspect]
     Active Substance: ACETAMINOPHEN
     Route: 065
  115. ASPIRIN [Concomitant]
     Active Substance: ASPIRIN
     Indication: Product used for unknown indication
  116. ASPIRIN [Concomitant]
     Active Substance: ASPIRIN
     Dates: start: 20211231
  117. ASPIRIN [Concomitant]
     Active Substance: ASPIRIN
     Indication: Product used for unknown indication
     Route: 065
  118. ASPIRIN [Concomitant]
     Active Substance: ASPIRIN
     Route: 065
     Dates: start: 20211231
  119. ALLOPURINOL [Concomitant]
     Active Substance: ALLOPURINOL
     Indication: Product used for unknown indication
  120. ALLOPURINOL [Concomitant]
     Active Substance: ALLOPURINOL
     Dates: start: 20211231
  121. ACYCLOVIR [Concomitant]
     Active Substance: ACYCLOVIR
     Indication: Product used for unknown indication
     Dates: start: 20211231
  122. ACYCLOVIR [Concomitant]
     Active Substance: ACYCLOVIR
     Dates: start: 20211231
  123. ACYCLOVIR [Concomitant]
     Active Substance: ACYCLOVIR
  124. AMOXICILLIN\CLAVULANATE POTASSIUM [Concomitant]
     Active Substance: AMOXICILLIN\CLAVULANATE POTASSIUM
     Indication: Product used for unknown indication
     Route: 065
     Dates: start: 20220122
  125. AMOXICILLIN\CLAVULANATE POTASSIUM [Concomitant]
     Active Substance: AMOXICILLIN\CLAVULANATE POTASSIUM
     Route: 065
     Dates: start: 20220122, end: 20220122
  126. DEXCHLORPHENIRAMINE [Concomitant]
     Active Substance: DEXCHLORPHENIRAMINE
     Indication: Product used for unknown indication
     Route: 065
     Dates: start: 20211231, end: 20220114
  127. DEXCHLORPHENIRAMINE [Concomitant]
     Active Substance: DEXCHLORPHENIRAMINE
     Route: 042
     Dates: start: 20220114
  128. DEXCHLORPHENIRAMINE [Concomitant]
     Active Substance: DEXCHLORPHENIRAMINE
     Route: 065
     Dates: start: 20220107, end: 20220107
  129. DEXCHLORPHENIRAMINE [Concomitant]
     Active Substance: DEXCHLORPHENIRAMINE
     Route: 042
     Dates: start: 20211231
  130. DEXCHLORPHENIRAMINE [Concomitant]
     Active Substance: DEXCHLORPHENIRAMINE
     Route: 042
     Dates: start: 20220107
  131. DEXCHLORPHENIRAMINE [Concomitant]
     Active Substance: DEXCHLORPHENIRAMINE
     Dates: start: 20220107, end: 20220107
  132. DEXCHLORPHENIRAMINE [Concomitant]
     Active Substance: DEXCHLORPHENIRAMINE
     Route: 042
     Dates: start: 20220107, end: 20220107
  133. FERROUS SULFATE [Concomitant]
     Active Substance: FERROUS SULFATE
     Indication: Product used for unknown indication
     Route: 065
     Dates: start: 20210915
  134. METHYLPREDNISOLONE [Concomitant]
     Active Substance: METHYLPREDNISOLONE
     Indication: Prophylaxis
     Route: 042
     Dates: start: 20220114
  135. METHYLPREDNISOLONE [Concomitant]
     Active Substance: METHYLPREDNISOLONE
     Route: 042
     Dates: start: 20220107
  136. METHYLPREDNISOLONE [Concomitant]
     Active Substance: METHYLPREDNISOLONE
     Route: 042
     Dates: start: 20211231, end: 20220114
  137. METHYLPREDNISOLONE [Concomitant]
     Active Substance: METHYLPREDNISOLONE
     Route: 065
     Dates: start: 20211231, end: 20220114
  138. PREDNISONE [Concomitant]
     Active Substance: PREDNISONE
     Indication: Product used for unknown indication
  139. ACETAMINOPHEN [Concomitant]
     Active Substance: ACETAMINOPHEN
     Indication: Product used for unknown indication
     Dates: start: 20211231
  140. SULFAMETHOXAZOLE\TRIMETHOPRIM [Concomitant]
     Active Substance: SULFAMETHOXAZOLE\TRIMETHOPRIM
     Indication: Product used for unknown indication
     Dates: start: 20211231, end: 20220217
  141. SODIUM FLUORIDE [Concomitant]
     Active Substance: SODIUM FLUORIDE
     Indication: Product used for unknown indication
  142. SODIUM FLUORIDE [Concomitant]
     Active Substance: SODIUM FLUORIDE
     Indication: Product used for unknown indication
  143. SODIUM FLUORIDE [Concomitant]
     Active Substance: SODIUM FLUORIDE
     Route: 042
  144. SODIUM FLUORIDE [Concomitant]
     Active Substance: SODIUM FLUORIDE
  145. VALGANCICLOVIR [Concomitant]
     Active Substance: VALGANCICLOVIR
     Indication: Product used for unknown indication
     Route: 065
     Dates: start: 20220103, end: 20220116
  146. ASPIRIN [Concomitant]
     Active Substance: ASPIRIN
     Indication: Product used for unknown indication
  147. FERROUS SULFATE [Concomitant]
     Active Substance: FERROUS SULFATE
     Indication: Product used for unknown indication
     Dates: start: 20210915
  148. SULFAMETHOXAZOLE AND TRIMETHOPRIM [Concomitant]
     Active Substance: SULFAMETHOXAZOLE\TRIMETHOPRIM
     Indication: Product used for unknown indication
     Dates: start: 20211231
  149. VALGANCICLOVIR HYDROCHLORIDE [Concomitant]
     Active Substance: VALGANCICLOVIR HYDROCHLORIDE
     Indication: Product used for unknown indication

REACTIONS (7)
  - Cytokine release syndrome [Recovered/Resolved]
  - Hypotension [Recovered/Resolved]
  - Pyrexia [Recovered/Resolved]
  - Haemoglobin decreased [Unknown]
  - C-reactive protein increased [Unknown]
  - Fibrin D dimer increased [Unknown]
  - Intentional product use issue [Unknown]

NARRATIVE: CASE EVENT DATE: 20220115
